FAERS Safety Report 21634376 (Version 1)
Quarter: 2022Q4

REPORT INFORMATION
  Report Type: Spontaneous
  Country: US (occurrence: None)
  Receive Date: 20221123
  Receipt Date: 20221123
  Transmission Date: 20230113
  Serious: Yes (Hospitalization)
  Sender: FDA-Public Use
  Company Number: None

PATIENT
  Age: 82 Year
  Sex: Male
  Weight: 103.5 kg

DRUGS (12)
  1. DURVALUMAB [Suspect]
     Active Substance: DURVALUMAB
  2. Albuterol HFA 90 mcg/actuation inhaler [Concomitant]
     Dates: start: 20220217
  3. Cholecalciferol, Vitamin D3, 50 mcg tablet [Concomitant]
     Dates: start: 20220825
  4. Empagliflozin (Jardiance) 25 mg [Concomitant]
     Dates: start: 20210819
  5. Ferrous Sulfate 325 (65 FE) mg tablet [Concomitant]
     Dates: start: 20191220
  6. Finasteride (Proscar) 5 mg tablet [Concomitant]
     Dates: start: 20210628
  7. Fluticasone propion-salmeterol (Advair) [Concomitant]
     Dates: start: 20220217
  8. NEURONTIN [Concomitant]
     Active Substance: GABAPENTIN
     Dates: start: 20221102
  9. Insulin glargine (Lantus Solostar) 100 unit/mL pen [Concomitant]
     Dates: start: 20210819
  10. LISINOPRIL [Concomitant]
     Active Substance: LISINOPRIL
     Dates: start: 20220526
  11. Simvastatin (Zocor) 20 mg tablet [Concomitant]
     Dates: start: 20221024
  12. Temazepam (Restoril) 15 mg capsule [Concomitant]
     Dates: start: 20220422

REACTIONS (3)
  - Acute kidney injury [None]
  - Deep vein thrombosis [None]
  - Immune-mediated nephritis [None]

NARRATIVE: CASE EVENT DATE: 20221115
